FAERS Safety Report 9527176 (Version 1)
Quarter: 2013Q3

REPORT INFORMATION
  Report Type: Spontaneous
  Country: US (occurrence: US)
  Receive Date: 20130916
  Receipt Date: 20130916
  Transmission Date: 20140515
  Serious: No
  Sender: FDA-Public Use
  Company Number: US-009507513-1308USA014890

PATIENT
  Age: 38 Year
  Sex: Male
  Weight: 72.56 kg

DRUGS (4)
  1. PEGINTRON [Suspect]
     Indication: HEPATITIS C
     Dosage: REDIPEN
     Dates: start: 20130402
  2. REBETOL [Suspect]
     Indication: HEPATITIS C
     Dosage: 5
     Route: 048
     Dates: start: 20130402, end: 2013
  3. REBETOL [Suspect]
     Dosage: 3
     Route: 048
     Dates: start: 2013
  4. TELAPREVIR [Suspect]
     Indication: HEPATITIS C
     Dosage: UNK
     Dates: start: 20130402

REACTIONS (11)
  - Sunburn [Unknown]
  - Monocyte count decreased [Unknown]
  - Anaemia [Unknown]
  - White blood cell count decreased [Unknown]
  - Red blood cell count decreased [Unknown]
  - Anxiety [Unknown]
  - Decreased appetite [Recovering/Resolving]
  - Weight decreased [Recovering/Resolving]
  - Vomiting [Unknown]
  - Feeling abnormal [Unknown]
  - Muscle atrophy [Unknown]
